FAERS Safety Report 5572209-5 (Version None)
Quarter: 2007Q4

REPORT INFORMATION
  Report Type: 
  Country: None (occurrence: None)
  Receive Date: 20071221
  Receipt Date: 20071211
  Transmission Date: 20080405
  Serious: Yes (Other)
  Sender: FDA-Public Use
  Company Number: US-PFIZER INC-2007104274

PATIENT
  Sex: Male

DRUGS (5)
  1. BEXTRA [Suspect]
     Indication: ABDOMINAL PAIN
     Dates: start: 20020429, end: 20030121
  2. BEXTRA [Suspect]
     Indication: PAIN IN EXTREMITY
  3. BEXTRA [Suspect]
     Indication: DIABETES MELLITUS
  4. BEXTRA [Suspect]
     Indication: OSTEOARTHRITIS
  5. CELEBREX [Suspect]
     Indication: OSTEOARTHRITIS

REACTIONS (1)
  - RASH [None]
